FAERS Safety Report 6304545-9 (Version None)
Quarter: 2009Q3

REPORT INFORMATION
  Report Type: 
  Country: None (occurrence: None)
  Receive Date: 20090806
  Receipt Date: 20090729
  Transmission Date: 20100115
  Serious: Yes (Other)
  Sender: FDA-Public Use
  Company Number: CHPA2009US16128

PATIENT
  Age: 43 Year
  Sex: Male
  Weight: 106.6 kg

DRUGS (6)
  1. VOLTAREN [Suspect]
     Indication: HAEMORRHOIDS
     Dosage: SMALL AMOUNT, UNMEASURED, 4 X EACH DAY, TOPICAL
     Route: 061
     Dates: start: 20090715, end: 20090728
  2. VOLTAREN [Suspect]
     Indication: SURGERY
     Dosage: SMALL AMOUNT, UNMEASURED, 4 X EACH DAY, TOPICAL
     Route: 061
     Dates: start: 20090715, end: 20090728
  3. DIOVAN HCT [Concomitant]
  4. DIBUCAINE OINTMENT (CINCHOCAINE) [Concomitant]
  5. LIDOCAINE HYDROCHLORIDE [Concomitant]
  6. PRILOCAINE (PRILOCAINE) [Concomitant]

REACTIONS (4)
  - ANORECTAL DISORDER [None]
  - CYST [None]
  - DRUG ADMINISTERED AT INAPPROPRIATE SITE [None]
  - PAIN [None]
